FAERS Safety Report 4500503-5 (Version None)
Quarter: 2004Q3

REPORT INFORMATION
  Report Type: 
  Country: None (occurrence: None)
  Receive Date: 20040928
  Receipt Date: 20040621
  Transmission Date: 20050211
  Serious: No
  Sender: FDA-Public Use
  Company Number: 03P-163-0242052-00

PATIENT
  Age: 64 Year
  Sex: Male
  Weight: 95.709 kg

DRUGS (12)
  1. HUMIRA [Suspect]
     Indication: RHEUMATOID ARTHRITIS
     Dosage: 40 MG, 1 IN 2 WK, SUBCUTANEOUS
     Route: 058
     Dates: start: 20031015
  2. NADOLOL [Concomitant]
  3. RABEPRAZOLE SODIUM [Concomitant]
  4. LEVOTHYROXINE SODIUM [Concomitant]
  5. ROSIGLITAZONE MALEATE [Concomitant]
  6. CELECOXIB [Concomitant]
  7. FOLIC ACID [Concomitant]
  8. HYDROCHLOROTHIAZIDE [Concomitant]
  9. FOLATE SODIUM [Concomitant]
  10. CO-DIOVAN [Concomitant]
  11. GLUCOPHAGE XR [Concomitant]
  12. ACETYLSALICYLIC ACID SRT [Concomitant]

REACTIONS (3)
  - GASTRITIS EROSIVE [None]
  - HAEMOGLOBIN DECREASED [None]
  - VIRAL INFECTION [None]
